FAERS Safety Report 19891702 (Version 2)
Quarter: 2021Q4

REPORT INFORMATION
  Report Type: Spontaneous
  Country: PL (occurrence: PL)
  Receive Date: 20210928
  Receipt Date: 20211214
  Transmission Date: 20220303
  Serious: Yes (Hospitalization, Other)
  Sender: FDA-Public Use
  Company Number: PL-002147023-NVSC2021PL108717

PATIENT
  Age: 64 Year
  Sex: Male

DRUGS (2)
  1. GLIMEPIRIDE [Suspect]
     Active Substance: GLIMEPIRIDE
     Indication: Type 2 diabetes mellitus
     Dosage: UNK UNK, QD (2 UNK, BID)
     Route: 065
  2. DEXTROSE [Concomitant]
     Active Substance: DEXTROSE
     Indication: Blood glucose decreased
     Dosage: UNK
     Route: 042

REACTIONS (7)
  - Hypoglycaemic encephalopathy [Unknown]
  - Toxicity to various agents [Unknown]
  - Gaze palsy [Unknown]
  - Neurological symptom [Unknown]
  - Loss of consciousness [Unknown]
  - Quadriparesis [Unknown]
  - Hypoglycaemia [Unknown]
